FAERS Safety Report 5964471-1 (Version None)
Quarter: 2008Q4

REPORT INFORMATION
  Report Type: 
  Country: None (occurrence: None)
  Receive Date: 20081124
  Receipt Date: 20081124
  Transmission Date: 20090506
  Serious: No
  Sender: FDA-Public Use
  Company Number: None

PATIENT
  Sex: Male
  Weight: 75 kg

DRUGS (2)
  1. HEPARIN SODIUM [Suspect]
     Indication: EXTRACORPOREAL CIRCULATION
     Dosage: 33,000 UNITS TOTAL DOSE DIVIDED IN 2 DOSES OTHER
     Route: 050
     Dates: start: 20081110, end: 20081110
  2. HEPARIN SODIUM [Suspect]
     Indication: EXTRACORPOREAL CIRCULATION
     Dosage: 10,000 UNITS/ML
     Dates: start: 20081110, end: 20081110

REACTIONS (1)
  - UNEVALUABLE EVENT [None]
